FAERS Safety Report 5024845-2 (Version None)
Quarter: 2006Q2

REPORT INFORMATION
  Report Type: 
  Country: None (occurrence: None)
  Receive Date: 20060607
  Receipt Date: 20060531
  Transmission Date: 20061013
  Serious: Yes (Death)
  Sender: FDA-Public Use
  Company Number: HQWYE615301JUN06

PATIENT
  Sex: Male

DRUGS (1)
  1. CORDARONE [Suspect]
     Indication: ATRIAL FIBRILLATION
     Dosage: 300 MG OVER 1 HOUR AND THAN 900 MG SET UP BUT RUN IN OVER 1 HOUR LATER INTRAVENOUS
     Route: 042

REACTIONS (2)
  - BRADYCARDIA [None]
  - CARDIAC ARREST [None]
